FAERS Safety Report 15242322 (Version 4)
Quarter: 2019Q2

REPORT INFORMATION
  Report Type: Report from Study
  Country: CA (occurrence: CA)
  Receive Date: 20180806
  Receipt Date: 20190527
  Transmission Date: 20190711
  Serious: Yes (Other)
  Sender: FDA-Public Use
  Company Number: CA-BRISTOL-MYERS SQUIBB COMPANY-BMS-2018-001314

PATIENT
  Age: 68 Year
  Sex: Male

DRUGS (1)
  1. ABATACEPT [Suspect]
     Active Substance: ABATACEPT
     Indication: RHEUMATOID ARTHRITIS
     Dosage: 750 MG, Q4WK
     Route: 042
     Dates: start: 20171207

REACTIONS (16)
  - Nasopharyngitis [Unknown]
  - Pharyngitis [Unknown]
  - Malaise [Unknown]
  - Ear haemorrhage [Unknown]
  - Asthenia [Unknown]
  - Cough [Unknown]
  - Dysphagia [Unknown]
  - Tympanic membrane perforation [Unknown]
  - Anxiety [Unknown]
  - Upper respiratory tract infection [Unknown]
  - Weight decreased [Unknown]
  - Ill-defined disorder [Recovering/Resolving]
  - Pain in extremity [Unknown]
  - Rhinorrhoea [Unknown]
  - Ear infection [Unknown]
  - Arthralgia [Not Recovered/Not Resolved]

NARRATIVE: CASE EVENT DATE: 20180103
